APPROVED DRUG PRODUCT: PREDNISONE
Active Ingredient: PREDNISONE
Strength: 20MG
Dosage Form/Route: TABLET;ORAL
Application: A089599 | Product #001
Applicant: AMNEAL PHARMACEUTICALS NY LLC
Approved: Oct 5, 1987 | RLD: No | RS: No | Type: DISCN